FAERS Safety Report 6602255-1 (Version None)
Quarter: 2010Q1

REPORT INFORMATION
  Report Type: 
  Country: None (occurrence: None)
  Receive Date: 20100225
  Receipt Date: 20100222
  Transmission Date: 20100710
  Serious: Yes (Other)
  Sender: FDA-Public Use
  Company Number: FR-SANOFI-AVENTIS-2010SA009732

PATIENT
  Sex: Female

DRUGS (3)
  1. ELOXATIN [Suspect]
     Indication: COLON CANCER
     Dosage: DOSE:5 MILLIGRAM(S)/MILLILITRE
     Route: 041
     Dates: start: 20090701, end: 20100101
  2. FOLINIC ACID [Concomitant]
     Indication: COLON CANCER
     Route: 042
     Dates: start: 20090701, end: 20100101
  3. 5-FU [Concomitant]
     Indication: COLON CANCER
     Route: 042
     Dates: start: 20090701, end: 20100101

REACTIONS (3)
  - GASTRIC VARICES [None]
  - INVESTIGATION ABNORMAL [None]
  - PORTAL HYPERTENSION [None]
